FAERS Safety Report 16944965 (Version 1)
Quarter: 2019Q4

REPORT INFORMATION
  Report Type: Spontaneous
  Country: DK (occurrence: DK)
  Receive Date: 20191022
  Receipt Date: 20191022
  Transmission Date: 20200122
  Serious: Yes (Other)
  Sender: FDA-Public Use
  Company Number: DK-PFIZER INC-2019451360

PATIENT
  Age: 53 Year
  Sex: Male

DRUGS (4)
  1. DICLOCIL [Concomitant]
     Active Substance: DICLOXACILLIN SODIUM
     Indication: HIP ARTHROPLASTY
     Dosage: 1 G, UNK (TOTAL)
     Dates: start: 20161026, end: 20161026
  2. TRANEXAMSYRE [Suspect]
     Active Substance: TRANEXAMIC ACID
     Indication: HIP ARTHROPLASTY
     Dosage: 2020 ML, 2 DOSES PER 1010 ML
     Route: 042
     Dates: start: 20161026, end: 20161026
  3. CEFUROXIME. [Concomitant]
     Active Substance: CEFUROXIME
     Indication: HIP ARTHROPLASTY
     Dosage: 1 G, UNK (TOTAL)
     Dates: start: 20161026, end: 20161026
  4. SOLU-MEDROL [Concomitant]
     Active Substance: METHYLPREDNISOLONE SODIUM SUCCINATE
     Indication: HIP ARTHROPLASTY
     Dosage: 1 G, UNK (TOTAL)
     Dates: start: 20161026, end: 20161026

REACTIONS (9)
  - Facial paresis [Not Recovered/Not Resolved]
  - Dizziness [Not Recovered/Not Resolved]
  - Dyspnoea [Unknown]
  - Cerebral haemorrhage [Recovered/Resolved with Sequelae]
  - Somnolence [Recovered/Resolved]
  - Hemiparesis [Not Recovered/Not Resolved]
  - Drooling [Not Recovered/Not Resolved]
  - Brain stem thrombosis [Recovered/Resolved with Sequelae]
  - Fatigue [Not Recovered/Not Resolved]

NARRATIVE: CASE EVENT DATE: 201610
